FAERS Safety Report 6011036-1 (Version None)
Quarter: 2008Q4

REPORT INFORMATION
  Report Type: 
  Country: None (occurrence: None)
  Receive Date: 20081218
  Receipt Date: 20081212
  Transmission Date: 20090506
  Serious: Yes (Other)
  Sender: FDA-Public Use
  Company Number: US-PFIZER INC-2008154344

PATIENT
  Sex: Female
  Weight: 113.39 kg

DRUGS (3)
  1. XALATAN [Suspect]
     Indication: GLAUCOMA
     Dosage: 2 GTT, 1X/DAY
  2. VERELAN [Concomitant]
     Indication: HYPERTENSION
     Dosage: UNK
  3. OPHTHALMOLOGICALS [Concomitant]

REACTIONS (1)
  - CATARACT OPERATION [None]
